FAERS Safety Report 15820904 (Version 1)
Quarter: 2019Q1

REPORT INFORMATION
  Report Type: Spontaneous
  Country: PT (occurrence: PT)
  Receive Date: 20190114
  Receipt Date: 20190114
  Transmission Date: 20190417
  Serious: Yes (Death, Other)
  Sender: FDA-Public Use
  Company Number: PT-SAKK-2019SA007522AA

PATIENT
  Age: 80 Year
  Sex: Female

DRUGS (1)
  1. ENOXAPARIN SODIUM. [Suspect]
     Active Substance: ENOXAPARIN SODIUM
     Dosage: UNK
     Route: 058

REACTIONS (8)
  - Shock haemorrhagic [Fatal]
  - Abdominal pain [Fatal]
  - Abdominal mass [Fatal]
  - Anaemia [Fatal]
  - Abdominal wall haemorrhage [Fatal]
  - Cough [Unknown]
  - Abdominal wall haematoma [Fatal]
  - Condition aggravated [Fatal]
